FAERS Safety Report 9490862 (Version 2)
Quarter: 2013Q4

REPORT INFORMATION
  Report Type: Spontaneous
  Country: US (occurrence: US)
  Receive Date: 20130830
  Receipt Date: 20131028
  Transmission Date: 20140711
  Serious: No
  Sender: FDA-Public Use
  Company Number: US-PFIZER INC-2013247856

PATIENT
  Sex: Female

DRUGS (3)
  1. DEPO-MEDROL [Suspect]
     Dosage: UNK
     Dates: start: 201302
  2. BUPROPION ER 300 MG [Suspect]
     Indication: DEPRESSION
     Dosage: 150 MG, 1X/DAY
  3. BUPROPION SR [Suspect]
     Indication: DEPRESSION
     Dosage: 100 MG, 1X/DAY

REACTIONS (4)
  - Fatigue [Unknown]
  - Hypoaesthesia [Unknown]
  - Depression [Unknown]
  - Influenza [Unknown]
